FAERS Safety Report 23574832 (Version 2)
Quarter: 2024Q1

REPORT INFORMATION
  Report Type: Spontaneous
  Country: US (occurrence: US)
  Receive Date: 20240228
  Receipt Date: 20240229
  Transmission Date: 20240409
  Serious: Yes (Other)
  Sender: FDA-Public Use
  Company Number: US-CSLP-29602184177-V13585724-3

PATIENT
  Age: 37 Year
  Sex: Male

DRUGS (1)
  1. ANTICOAGULANT SODIUM CITRATE [Suspect]
     Active Substance: SODIUM CITRATE
     Indication: Anticoagulant therapy
     Route: 050
     Dates: start: 20240220, end: 20240220

REACTIONS (11)
  - Loss of consciousness [Recovered/Resolved]
  - Pain in extremity [Recovered/Resolved]
  - Muscle spasms [Recovered/Resolved]
  - Feeling hot [Recovered/Resolved]
  - Cold sweat [Recovered/Resolved]
  - Hypoaesthesia [Recovered/Resolved]
  - Hyperhidrosis [Recovered/Resolved]
  - Nausea [Recovered/Resolved]
  - Abdominal pain upper [Recovered/Resolved]
  - Dizziness [Recovered/Resolved]
  - Paraesthesia [Recovered/Resolved]

NARRATIVE: CASE EVENT DATE: 20240220
